FAERS Safety Report 25515174 (Version 2)
Quarter: 2025Q3

REPORT INFORMATION
  Report Type: Spontaneous
  Country: CN (occurrence: CN)
  Receive Date: 20250703
  Receipt Date: 20250724
  Transmission Date: 20251020
  Serious: Yes (Hospitalization, Other)
  Sender: BAUSCH AND LOMB
  Company Number: CN-BAUSCH-BL-2025-007927

PATIENT
  Age: 61 Year
  Sex: Male

DRUGS (5)
  1. DEXAMETHASONE [Suspect]
     Active Substance: DEXAMETHASONE
     Indication: Mantle cell lymphoma
     Route: 065
  2. RITUXIMAB [Suspect]
     Active Substance: RITUXIMAB
     Indication: Mantle cell lymphoma
     Route: 065
  3. CYCLOPHOSPHAMIDE [Suspect]
     Active Substance: CYCLOPHOSPHAMIDE
     Indication: Mantle cell lymphoma
     Route: 065
  4. EPIRUBICIN [Suspect]
     Active Substance: EPIRUBICIN
     Indication: Mantle cell lymphoma
     Route: 065
  5. VINDESINE [Suspect]
     Active Substance: VINDESINE
     Indication: Mantle cell lymphoma
     Route: 065

REACTIONS (4)
  - Interstitial lung disease [Recovered/Resolved]
  - Whipple^s disease [Recovered/Resolved]
  - Pneumonia pneumococcal [Recovered/Resolved]
  - Therapy partial responder [Unknown]
